FAERS Safety Report 5009303-3 (Version None)
Quarter: 2006Q2

REPORT INFORMATION
  Report Type: 
  Country: None (occurrence: None)
  Receive Date: 20060524
  Receipt Date: 20060517
  Transmission Date: 20061013
  Serious: Yes (Other)
  Sender: FDA-Public Use
  Company Number: PHEH2006US06496

PATIENT
  Age: 76 Year
  Sex: Male
  Weight: 95.238 kg

DRUGS (5)
  1. COUMADIN [Concomitant]
     Dates: start: 19990101
  2. ZOCOR [Concomitant]
     Indication: BLOOD CHOLESTEROL INCREASED
     Dates: start: 19960101
  3. BETAPACE [Concomitant]
     Dates: start: 19990101
  4. DITROPAN [Concomitant]
     Indication: INCONTINENCE
     Dates: start: 19990101
  5. DIOVAN HCT [Suspect]
     Indication: HYPERTENSION
     Dosage: 160MG VAL/25MG HCT, QD
     Dates: start: 19990101

REACTIONS (6)
  - BLOOD PRESSURE DECREASED [None]
  - CARDIAC PACEMAKER INSERTION [None]
  - DEPRESSION [None]
  - DIZZINESS [None]
  - FATIGUE [None]
  - PARKINSON'S DISEASE [None]
